FAERS Safety Report 15586713 (Version 1)
Quarter: 2018Q4

REPORT INFORMATION
  Report Type: Spontaneous
  Country: US (occurrence: US)
  Receive Date: 20181105
  Receipt Date: 20181105
  Transmission Date: 20190205
  Serious: Yes (Other)
  Sender: FDA-Public Use
  Company Number: US-BIOCOMPATIBLES UK LTD-2018BTG01812

PATIENT
  Age: 2 Year
  Sex: Male

DRUGS (2)
  1. CROFAB [Suspect]
     Active Substance: CROTALIDAE POLYVALENT IMMUNE FAB (OVINE)
     Indication: SNAKE BITE
     Dosage: 8 VIALS
     Dates: start: 201810
  2. CROFAB [Suspect]
     Active Substance: CROTALIDAE POLYVALENT IMMUNE FAB (OVINE)
     Dosage: 6 VIALS
     Dates: start: 20181023

REACTIONS (6)
  - Oedema peripheral [Unknown]
  - Peripheral swelling [Unknown]
  - Compartment syndrome [Unknown]
  - Condition aggravated [Unknown]
  - Pain in extremity [Unknown]
  - Skin abrasion [Unknown]

NARRATIVE: CASE EVENT DATE: 201810
